FAERS Safety Report 8222084-5 (Version None)
Quarter: 2012Q1

REPORT INFORMATION
  Report Type: 
  Country: None (occurrence: None)
  Receive Date: 20120320
  Receipt Date: 20120308
  Transmission Date: 20120608
  Serious: Yes (Death)
  Sender: FDA-Public Use
  Company Number: CA-BRISTOL-MYERS SQUIBB COMPANY-16449829

PATIENT
  Age: 35 Year
  Sex: Female

DRUGS (4)
  1. ABILIFY [Suspect]
     Route: 048
     Dates: start: 20110505
  2. NEXIUM [Concomitant]
  3. LORAZEPAM [Concomitant]
  4. PRISTIQ [Concomitant]

REACTIONS (1)
  - ARRHYTHMIA [None]
